FAERS Safety Report 15261224 (Version 1)
Quarter: 2018Q3

REPORT INFORMATION
  Report Type: Spontaneous
  Country: US (occurrence: US)
  Receive Date: 20180719
  Receipt Date: 20180719
  Transmission Date: 20181010
  Serious: Yes (Hospitalization)
  Sender: FDA-Public Use
  Company Number: None

PATIENT
  Age: 48 Year
  Sex: Female

DRUGS (9)
  1. OMEPRAZOLE. [Concomitant]
     Active Substance: OMEPRAZOLE
  2. OXYCODONE [Concomitant]
     Active Substance: OXYCODONE
  3. PHILLIPS COLON CAPS [Concomitant]
  4. CIPROFLOXACIN. [Concomitant]
     Active Substance: CIPROFLOXACIN
  5. SERTRALINE [Concomitant]
     Active Substance: SERTRALINE HYDROCHLORIDE
  6. CAPECITABINE. [Suspect]
     Active Substance: CAPECITABINE
     Indication: INTESTINAL METASTASIS
     Route: 048
     Dates: start: 20180613
  7. DEXAMETHASONE. [Concomitant]
     Active Substance: DEXAMETHASONE
  8. ONDANSETRON [Concomitant]
     Active Substance: ONDANSETRON
  9. METRONIDAZOL [Concomitant]
     Active Substance: METRONIDAZOLE

REACTIONS (2)
  - Dehydration [None]
  - Gastrointestinal inflammation [None]

NARRATIVE: CASE EVENT DATE: 20180712
